FAERS Safety Report 9391937 (Version 1)
Quarter: 2013Q3

REPORT INFORMATION
  Report Type: Spontaneous
  Country: JP (occurrence: JP)
  Receive Date: 20130709
  Receipt Date: 20130709
  Transmission Date: 20140515
  Serious: Yes (Hospitalization)
  Sender: FDA-Public Use
  Company Number: CHNY2013JP001435

PATIENT
  Sex: Male

DRUGS (1)
  1. NICOTINELL TTS [Suspect]
     Indication: SMOKING CESSATION THERAPY
     Dosage: 35 MG, QD
     Route: 062

REACTIONS (1)
  - Pneumonia [Recovering/Resolving]
